FAERS Safety Report 17968616 (Version 1)
Quarter: 2020Q3

REPORT INFORMATION
  Report Type: Spontaneous
  Country: BR (occurrence: BR)
  Receive Date: 20200701
  Receipt Date: 20200701
  Transmission Date: 20201103
  Serious: Yes (Other)
  Sender: FDA-Public Use
  Company Number: BR-SA-2020SA061651

PATIENT

DRUGS (1)
  1. AUBAGIO [Suspect]
     Active Substance: TERIFLUNOMIDE
     Indication: MULTIPLE SCLEROSIS
     Dosage: 14 MG, QD
     Route: 048
     Dates: start: 201910, end: 20200315

REACTIONS (10)
  - Sialoadenitis [Unknown]
  - Gingival discomfort [Recovered/Resolved]
  - Salivary gland disorder [Not Recovered/Not Resolved]
  - Vision blurred [Recovered/Resolved]
  - Gingival swelling [Recovered/Resolved]
  - Gingival erythema [Recovered/Resolved]
  - Therapy cessation [Unknown]
  - Alopecia [Recovered/Resolved]
  - Eye disorder [Recovered/Resolved]
  - Erythema [Recovered/Resolved]

NARRATIVE: CASE EVENT DATE: 202002
